FAERS Safety Report 4319410-6 (Version None)
Quarter: 2004Q1

REPORT INFORMATION
  Report Type: 
  Country: None (occurrence: None)
  Receive Date: 20040316
  Receipt Date: 20040227
  Transmission Date: 20041129
  Serious: Yes (Hospitalization)
  Sender: FDA-Public Use
  Company Number: US_0403101181

PATIENT
  Age: 40 Year
  Sex: Female

DRUGS (5)
  1. NPH ILETIN I (BEEF-PORK) [Suspect]
     Indication: DIABETES MELLITUS
     Dosage: 20 U/ 1DAY
     Dates: start: 19620101, end: 19980101
  2. ILETIN-BEEF/PORK REGULAR INSULIN (INSULIN, ANIMAL) [Suspect]
     Indication: DIABETES MELLITUS
     Dosage: 1 U/ 1 DAY
     Dates: start: 19620101
  3. NPH ILETIN II (PORK) [Suspect]
     Indication: DIABETES MELLITUS
     Dosage: 30 U/ 1 DAY
     Dates: start: 19980101
  4. PRENATAL VITAMINS [Concomitant]
  5. LORATADINE [Concomitant]

REACTIONS (8)
  - ABORTION SPONTANEOUS [None]
  - BLOOD GLUCOSE DECREASED [None]
  - BLOOD GLUCOSE INCREASED [None]
  - COMPLICATIONS OF MATERNAL EXPOSURE TO THERAPEUTIC DRUGS [None]
  - INTRA-UTERINE DEATH [None]
  - MATERNAL DRUGS AFFECTING FOETUS [None]
  - PREGNANCY [None]
  - PREMATURE LABOUR [None]
